FAERS Safety Report 8229663-X (Version None)
Quarter: 2012Q1

REPORT INFORMATION
  Report Type: 
  Country: None (occurrence: None)
  Receive Date: 20120322
  Receipt Date: 20120314
  Transmission Date: 20120608
  Serious: Yes (Hospitalization, Other)
  Sender: FDA-Public Use
  Company Number: PHFR2012GB000745

PATIENT
  Sex: Male

DRUGS (3)
  1. CLOZARIL [Suspect]
     Indication: SCHIZOPHRENIA
     Dosage: 400 MG, DAILY
     Route: 048
     Dates: start: 20060906
  2. CLOZARIL [Suspect]
     Dosage: 4.5 G
     Route: 048
     Dates: start: 20120115, end: 20120116
  3. CLOZARIL [Suspect]
     Dosage: 400 MG, DAILY
     Route: 048

REACTIONS (8)
  - CONFUSIONAL STATE [None]
  - OVERDOSE [None]
  - SEDATION [None]
  - ANTIPSYCHOTIC DRUG LEVEL INCREASED [None]
  - HALLUCINATION [None]
  - HEPATIC FUNCTION ABNORMAL [None]
  - DEPRESSED LEVEL OF CONSCIOUSNESS [None]
  - TACHYCARDIA [None]
